FAERS Safety Report 13887907 (Version 1)
Quarter: 2017Q3

REPORT INFORMATION
  Report Type: Spontaneous
  Country: AU (occurrence: AU)
  Receive Date: 20170821
  Receipt Date: 20170821
  Transmission Date: 20171127
  Serious: Yes (Hospitalization)
  Sender: FDA-Public Use
  Company Number: AU-SA-2017SA149714

PATIENT
  Age: 78 Year

DRUGS (2)
  1. CLOPIDOGREL BISULFATE. [Suspect]
     Active Substance: CLOPIDOGREL BISULFATE
     Route: 048
  2. APIXABAN [Concomitant]
     Active Substance: APIXABAN
     Route: 065

REACTIONS (6)
  - Atrial fibrillation [Unknown]
  - Confusional state [Recovered/Resolved]
  - Transient ischaemic attack [Recovered/Resolved]
  - Muscular weakness [Recovered/Resolved]
  - Limb discomfort [Recovered/Resolved]
  - Somnolence [Recovered/Resolved]
